FAERS Safety Report 8846884 (Version 2)
Quarter: 2013Q1

REPORT INFORMATION
  Report Type: Spontaneous
  Country: US (occurrence: None)
  Receive Date: 20121018
  Receipt Date: 20121024
  Transmission Date: 20140127
  Serious: Yes (Hospitalization)
  Sender: FDA-Public Use
  Company Number: None

PATIENT
  Age: 79 Year
  Sex: Female
  Weight: 61.4 kg

DRUGS (2)
  1. METHYLPREDNISOLONE ACETATE [Suspect]
     Indication: ARTHRALGIA
     Dosage: 40MG ONCE LEFT KNEE
     Dates: start: 20120827
  2. METHYLPREDNISOLONE ACETATE [Suspect]
     Indication: ARTHRALGIA
     Dosage: 40MG ONCE LEFT KNEE
     Dates: start: 20120827

REACTIONS (3)
  - Feeling abnormal [None]
  - Myocardial infarction [None]
  - Transient ischaemic attack [None]
